FAERS Safety Report 10435852 (Version 1)
Quarter: 2014Q3

REPORT INFORMATION
  Report Type: Spontaneous
  Country: US (occurrence: US)
  Receive Date: 20140908
  Receipt Date: 20140908
  Transmission Date: 20150326
  Serious: No
  Sender: FDA-Public Use
  Company Number: US-GLAXOSMITHKLINE-A1073474A

PATIENT
  Age: 68 Year
  Sex: Male

DRUGS (4)
  1. VENTOLIN [Concomitant]
     Active Substance: ALBUTEROL SULFATE
  2. LORTAB [Concomitant]
     Active Substance: ACETAMINOPHEN\HYDROCODONE BITARTRATE
  3. XANAX [Concomitant]
     Active Substance: ALPRAZOLAM
  4. BREO ELLIPTA [Suspect]
     Active Substance: FLUTICASONE FUROATE\VILANTEROL TRIFENATATE
     Indication: LUNG DISORDER
     Dosage: 1PUFF PER DAY
     Route: 055
     Dates: start: 201404

REACTIONS (5)
  - Dizziness [Recovering/Resolving]
  - Nervousness [Recovering/Resolving]
  - Dyspnoea [Recovering/Resolving]
  - Agitation [Recovering/Resolving]
  - Chest pain [Recovered/Resolved]

NARRATIVE: CASE EVENT DATE: 201404
